FAERS Safety Report 5462434-6 (Version None)
Quarter: 2007Q3

REPORT INFORMATION
  Report Type: 
  Country: None (occurrence: None)
  Receive Date: 20070814
  Receipt Date: 20060504
  Transmission Date: 20080115
  Serious: Yes (Hospitalization)
  Sender: FDA-Public Use
  Company Number: SP00851

PATIENT
  Age: 71 Year
  Sex: Female
  Weight: 78.4723 kg

DRUGS (4)
  1. COLAZAL [Suspect]
     Indication: COLITIS ULCERATIVE
     Dosage: 6 CAPSULES DAILY (QD), ORAL
     Route: 048
     Dates: start: 20060301, end: 20060305
  2. COLAZAL [Suspect]
     Indication: COLITIS ULCERATIVE
     Dosage: 6 CAPSULES DAILY (QD), ORAL
     Route: 048
     Dates: start: 20051227
  3. CANASA [Concomitant]
  4. ROWASA [Concomitant]

REACTIONS (1)
  - PANCREATITIS [None]
